FAERS Safety Report 7035796-6 (Version None)
Quarter: 2010Q4

REPORT INFORMATION
  Report Type: 
  Country: None (occurrence: None)
  Receive Date: 20101008
  Receipt Date: 20101001
  Transmission Date: 20110411
  Serious: Yes (Hospitalization)
  Sender: FDA-Public Use
  Company Number: US-BAYER-201032127NA

PATIENT
  Age: 67 Year
  Sex: Male

DRUGS (2)
  1. CIPRO [Suspect]
     Indication: ANTIBIOTIC THERAPY
     Dosage: TOTAL DAILY DOSE: 1000 MG  UNIT DOSE: 500 MG
     Route: 048
     Dates: start: 20100324, end: 20100701
  2. HYDROCORDOZONE [Concomitant]

REACTIONS (9)
  - CONFUSIONAL STATE [None]
  - DEPRESSION [None]
  - DIZZINESS [None]
  - DYSPHAGIA [None]
  - HALLUCINATION [None]
  - INSOMNIA [None]
  - PARANOIA [None]
  - TENDONITIS [None]
  - TREMOR [None]
